FAERS Safety Report 6479549-6 (Version None)
Quarter: 2009Q4

REPORT INFORMATION
  Report Type: 
  Country: None (occurrence: None)
  Receive Date: 20091208
  Receipt Date: 20091201
  Transmission Date: 20100525
  Serious: Yes (Hospitalization, Other)
  Sender: FDA-Public Use
  Company Number: US-ELI_LILLY_AND_COMPANY-US200912001155

PATIENT
  Sex: Female
  Weight: 81.179 kg

DRUGS (15)
  1. BYETTA [Suspect]
     Indication: TYPE 2 DIABETES MELLITUS
     Dosage: 5 UG, 2/D
     Route: 058
     Dates: start: 20050101, end: 20050201
  2. BYETTA [Suspect]
     Dosage: 10 UG, 2/D
     Route: 058
     Dates: start: 20050201, end: 20070101
  3. BYETTA [Suspect]
     Dosage: 5 UG, 2/D
     Route: 058
     Dates: start: 20070101, end: 20080101
  4. BYETTA [Suspect]
     Dosage: 5 UG, DAILY (1/D)
     Route: 058
     Dates: start: 20080101, end: 20080101
  5. AVANDIA [Concomitant]
     Indication: TYPE 2 DIABETES MELLITUS
     Dosage: UNK, UNKNOWN
     Dates: start: 20030101, end: 20050101
  6. JANUVIA [Concomitant]
     Indication: TYPE 2 DIABETES MELLITUS
     Dosage: 100 MG, DAILY (1/D)
     Dates: start: 20080101, end: 20090301
  7. JANUVIA [Concomitant]
     Dosage: 50 MG, DAILY (1/D)
     Dates: start: 20090601
  8. COUMADIN [Concomitant]
     Indication: ANTICOAGULANT THERAPY
     Dosage: 7.5 MG, DAILY (1/D)
     Dates: start: 20020101, end: 20060101
  9. ATACAND [Concomitant]
     Indication: BLOOD PRESSURE
     Dosage: 8 MG, 2/D
     Dates: start: 19990101
  10. NORVASC [Concomitant]
     Indication: CARDIAC DISORDER
     Dosage: 5 MG, 2/D
     Dates: start: 19790101
  11. LIPITOR [Concomitant]
     Indication: TYPE 2 DIABETES MELLITUS
     Dosage: 20 MG, DAILY (1/D)
     Dates: start: 20030101
  12. ZOLOFT [Concomitant]
     Indication: DEPRESSION
     Dosage: 150 MG, DAILY (1/D)
     Dates: start: 20060101, end: 20060101
  13. ZOLOFT [Concomitant]
     Dosage: 50 MG, DAILY (1/D)
     Dates: start: 20060101
  14. FOSAMAX [Concomitant]
     Indication: OSTEOPOROSIS
     Dosage: UNK, UNKNOWN
  15. HORMONES AND RELATED AGENTS [Concomitant]
     Indication: OSTEOPOROSIS
     Dosage: UNK, UNKNOWN
     Route: 062

REACTIONS (26)
  - ABDOMINAL PAIN [None]
  - ANAEMIA [None]
  - BARRETT'S OESOPHAGUS [None]
  - BLOOD GLUCOSE DECREASED [None]
  - BLOOD PARATHYROID HORMONE DECREASED [None]
  - CARDIAC DISORDER [None]
  - CHEST PAIN [None]
  - DEPRESSION [None]
  - DRUG EFFECT INCREASED [None]
  - DYSPNOEA [None]
  - EPISTAXIS [None]
  - GALLBLADDER DISORDER [None]
  - GASTROOESOPHAGEAL REFLUX DISEASE [None]
  - HAEMORRHAGE [None]
  - HEADACHE [None]
  - INCORRECT DOSE ADMINISTERED [None]
  - INTRACARDIAC THROMBUS [None]
  - LETHARGY [None]
  - MYOCARDIAL INFARCTION [None]
  - NAUSEA [None]
  - OSTEOPOROSIS [None]
  - POST PROCEDURAL INFECTION [None]
  - PROCEDURAL COMPLICATION [None]
  - PULMONARY HYPERTENSION [None]
  - RECTAL HAEMORRHAGE [None]
  - RECTAL POLYP [None]
